FAERS Safety Report 15535793 (Version 1)
Quarter: 2018Q4

REPORT INFORMATION
  Report Type: Spontaneous
  Country: US (occurrence: US)
  Receive Date: 20181022
  Receipt Date: 20181022
  Transmission Date: 20190205
  Serious: Yes (Other)
  Sender: FDA-Public Use
  Company Number: US-PFIZER INC-2018421043

PATIENT
  Sex: Female
  Weight: 226.76 kg

DRUGS (1)
  1. LYRICA [Suspect]
     Active Substance: PREGABALIN
     Dosage: UNK

REACTIONS (4)
  - Drug dependence [Unknown]
  - Weight increased [Unknown]
  - Hernia [Unknown]
  - Intentional product misuse [Unknown]
